FAERS Safety Report 7401856-0 (Version None)
Quarter: 2011Q1

REPORT INFORMATION
  Report Type: 
  Country: None (occurrence: None)
  Receive Date: 20110301
  Receipt Date: 20101020
  Transmission Date: 20110831
  Serious: Yes (Other)
  Sender: FDA-Public Use
  Company Number: US-JNJFOC-20100604481

PATIENT
  Age: 42 Year
  Sex: Male
  Weight: 105 kg

DRUGS (11)
  1. OXYCODONE (OXYCODONE) [Concomitant]
  2. OXYCONTIN [Concomitant]
  3. CELEXA [Concomitant]
  4. ATIVAN [Concomitant]
  5. MIRALAX (MACROGEL) [Concomitant]
  6. MOTRIN [Suspect]
     Indication: CHEST PAIN
     Dosage: 400 MG, 3 IN 1 DAY, ORAL
     Route: 048
     Dates: start: 20080923, end: 20100527
  7. MOTRIN [Suspect]
     Indication: FLANK PAIN
     Dosage: 400 MG, 3 IN 1 DAY, ORAL
     Route: 048
     Dates: start: 20080923, end: 20100527
  8. STUDY MEDICATION (INVESTIGATIONAL DRUG) [Suspect]
     Indication: SMALL CELL LUNG CANCER STAGE UNSPECIFIED
     Dosage: 250 MG, 2 IN 1 DAY, ORAL, 200 MG, 2 IN 1 DAY, ORAL, 150 MG, 2 IN 1 DAY, ORAL, 150 MG, 2 IN 1 DAY, OR
     Route: 048
     Dates: start: 20100618, end: 20100621
  9. STUDY MEDICATION (INVESTIGATIONAL DRUG) [Suspect]
     Indication: SMALL CELL LUNG CANCER STAGE UNSPECIFIED
     Dosage: 250 MG, 2 IN 1 DAY, ORAL, 200 MG, 2 IN 1 DAY, ORAL, 150 MG, 2 IN 1 DAY, ORAL, 150 MG, 2 IN 1 DAY, OR
     Route: 048
     Dates: start: 20100702
  10. STUDY MEDICATION (INVESTIGATIONAL DRUG) [Suspect]
     Indication: SMALL CELL LUNG CANCER STAGE UNSPECIFIED
     Dosage: 250 MG, 2 IN 1 DAY, ORAL, 200 MG, 2 IN 1 DAY, ORAL, 150 MG, 2 IN 1 DAY, ORAL, 150 MG, 2 IN 1 DAY, OR
     Route: 048
     Dates: start: 20100422, end: 20100515
  11. STUDY MEDICATION (INVESTIGATIONAL DRUG) [Suspect]
     Indication: SMALL CELL LUNG CANCER STAGE UNSPECIFIED
     Dosage: 250 MG, 2 IN 1 DAY, ORAL, 200 MG, 2 IN 1 DAY, ORAL, 150 MG, 2 IN 1 DAY, ORAL, 150 MG, 2 IN 1 DAY, OR
     Route: 048
     Dates: start: 20100707

REACTIONS (1)
  - HEPATIC ENZYME INCREASED [None]
